FAERS Safety Report 9242870 (Version 1)
Quarter: 2013Q2

REPORT INFORMATION
  Report Type: Spontaneous
  Country: GR (occurrence: GR)
  Receive Date: 20130419
  Receipt Date: 20130419
  Transmission Date: 20140414
  Serious: No
  Sender: FDA-Public Use
  Company Number: GR-MERCK-1304GRC008047

PATIENT
  Age: 54 Year
  Sex: Female

DRUGS (3)
  1. AERIUS [Suspect]
     Indication: RHINITIS SEASONAL
     Dosage: 10 MG, QD
     Route: 048
     Dates: start: 20130407, end: 20130407
  2. AERIUS [Suspect]
     Dosage: 5 MG, QD
     Route: 048
     Dates: start: 20130413, end: 20130414
  3. COAPROVEL [Concomitant]
     Indication: HYPERTENSION
     Dosage: UNK MG, UNK

REACTIONS (13)
  - Eye swelling [Recovered/Resolved]
  - Swelling face [Recovered/Resolved]
  - Erythema [Recovered/Resolved]
  - Blood pressure increased [Recovered/Resolved]
  - Dyspnoea [Recovered/Resolved]
  - Pyrexia [Recovered/Resolved]
  - Overdose [Unknown]
  - Eye swelling [Recovering/Resolving]
  - Swelling face [Recovering/Resolving]
  - Erythema [Recovering/Resolving]
  - Blood pressure increased [Not Recovered/Not Resolved]
  - Dyspnoea [Recovering/Resolving]
  - Pyrexia [Recovering/Resolving]
